FAERS Safety Report 17767490 (Version 1)
Quarter: 2020Q2

REPORT INFORMATION
  Report Type: Spontaneous
  Country: US (occurrence: US)
  Receive Date: 20200511
  Receipt Date: 20200511
  Transmission Date: 20200714
  Serious: Yes (Other)
  Sender: FDA-Public Use
  Company Number: NVSC2020US126808

PATIENT

DRUGS (2)
  1. VATALANIB [Suspect]
     Active Substance: VATALANIB
     Indication: NEOPLASM
     Dosage: 1250 MG, QD/ 750 MG BID
     Route: 065
  2. EVEROLIMUS. [Suspect]
     Active Substance: EVEROLIMUS
     Indication: NEOPLASM
     Dosage: 10 MG, QD
     Route: 065

REACTIONS (1)
  - Thrombotic microangiopathy [Unknown]
